FAERS Safety Report 10567154 (Version 6)
Quarter: 2016Q2

REPORT INFORMATION
  Report Type: Spontaneous
  Country: US (occurrence: US)
  Receive Date: 20141105
  Receipt Date: 20160623
  Transmission Date: 20160815
  Serious: Yes (Hospitalization)
  Sender: FDA-Public Use
  Company Number: US-ACTELION-A-US2014-106616

PATIENT
  Age: 59 Year
  Sex: Male

DRUGS (17)
  1. FUROSEMIDE. [Concomitant]
     Active Substance: FUROSEMIDE
  2. PANTOPRAZOLE [Concomitant]
     Active Substance: PANTOPRAZOLE SODIUM
  3. PREDNISONE. [Concomitant]
     Active Substance: PREDNISONE
  4. SILDENAFIL. [Concomitant]
     Active Substance: SILDENAFIL
  5. TRAMADOL. [Concomitant]
     Active Substance: TRAMADOL
  6. REVATIO [Concomitant]
     Active Substance: SILDENAFIL CITRATE
  7. METOPROLOL. [Concomitant]
     Active Substance: METOPROLOL
  8. TYVASO [Concomitant]
     Active Substance: TREPROSTINIL
  9. WARFARIN [Concomitant]
     Active Substance: WARFARIN
  10. POTASSIUM [Concomitant]
     Active Substance: POTASSIUM
  11. ALLOPURINOL CF [Concomitant]
  12. METOLAZONE. [Concomitant]
     Active Substance: METOLAZONE
  13. OPSUMIT [Suspect]
     Active Substance: MACITENTAN
     Indication: PULMONARY ARTERIAL HYPERTENSION
     Dosage: 10 MG, QD
     Route: 048
     Dates: start: 20140514
  14. LIPITOR [Concomitant]
     Active Substance: ATORVASTATIN CALCIUM
  15. ARAVA [Concomitant]
     Active Substance: LEFLUNOMIDE
  16. DILTIAZEM HYDROCHLORIDE EXTENDED RELEASE [Concomitant]
     Active Substance: DILTIAZEM HYDROCHLORIDE
  17. LEFLUNOMIDE. [Concomitant]
     Active Substance: LEFLUNOMIDE

REACTIONS (11)
  - Pain [Not Recovered/Not Resolved]
  - Pain [Not Recovered/Not Resolved]
  - Chest pain [Recovering/Resolving]
  - Dyspnoea [Not Recovered/Not Resolved]
  - Influenza [Recovered/Resolved]
  - Palpitations [Not Recovered/Not Resolved]
  - Atrial tachycardia [Recovered/Resolved]
  - Rheumatoid arthritis [Not Recovered/Not Resolved]
  - Dyspnoea [Recovering/Resolving]
  - Syncope [Recovered/Resolved]
  - Supraventricular tachycardia [Recovering/Resolving]

NARRATIVE: CASE EVENT DATE: 20160308
